FAERS Safety Report 23379728 (Version 3)
Quarter: 2024Q1

REPORT INFORMATION
  Report Type: Spontaneous
  Country: GB (occurrence: GB)
  Receive Date: 20240108
  Receipt Date: 20240129
  Transmission Date: 20240410
  Serious: No
  Sender: FDA-Public Use
  Company Number: GB-JNJFOC-20231233619

PATIENT
  Age: 49 Year
  Sex: Male

DRUGS (1)
  1. SIMPONI [Suspect]
     Active Substance: GOLIMUMAB
     Indication: Psoriatic arthropathy
     Dosage: 50.00 MG / 0.50 ML
     Route: 058

REACTIONS (2)
  - Device defective [Unknown]
  - Off label use [Unknown]
